FAERS Safety Report 5821291-6 (Version None)
Quarter: 2008Q3

REPORT INFORMATION
  Report Type: 
  Country: None (occurrence: None)
  Receive Date: 20080722
  Receipt Date: 20080722
  Transmission Date: 20090109
  Serious: No
  Sender: FDA-Public Use
  Company Number: None

PATIENT
  Age: 64 Year
  Sex: Male
  Weight: 72.5755 kg

DRUGS (1)
  1. CRESTOR [Suspect]
     Indication: BLOOD CHOLESTEROL INCREASED
     Dosage: 20 MG DAILY
     Dates: start: 20060101, end: 20080721

REACTIONS (5)
  - ABNORMAL BEHAVIOUR [None]
  - FEAR [None]
  - FRUSTRATION [None]
  - ILL-DEFINED DISORDER [None]
  - MEMORY IMPAIRMENT [None]
